FAERS Safety Report 9134881 (Version 2)
Quarter: 2013Q1

REPORT INFORMATION
  Report Type: Spontaneous
  Country: JP (occurrence: JP)
  Receive Date: 20130304
  Receipt Date: 20130329
  Transmission Date: 20140127
  Serious: Yes (Hospitalization, Other)
  Sender: FDA-Public Use
  Company Number: JP-PFIZER INC-2013074778

PATIENT
  Age: 80 Year
  Sex: Female

DRUGS (1)
  1. CELECOX [Suspect]
     Indication: ARTHRALGIA
     Dosage: 200 MG, DAILY
     Route: 048

REACTIONS (1)
  - Pulmonary oedema [Unknown]
